FAERS Safety Report 24081358 (Version 5)
Quarter: 2025Q1

REPORT INFORMATION
  Report Type: Report from Study
  Country: JP (occurrence: JP)
  Receive Date: 20240711
  Receipt Date: 20250307
  Transmission Date: 20250409
  Serious: Yes (Death, Other)
  Sender: BRISTOL-MYERS SQUIBB COMPANY
  Company Number: JP-BRISTOL-MYERS SQUIBB COMPANY-2024-101595

PATIENT
  Age: 73 Year
  Sex: Female
  Weight: 57 kg

DRUGS (3)
  1. ABECMA [Suspect]
     Active Substance: IDECABTAGENE VICLEUCEL
     Indication: Plasma cell myeloma refractory
     Route: 042
     Dates: start: 20240515, end: 20240515
  2. CYCLOPHOSPHAMIDE [Concomitant]
     Active Substance: CYCLOPHOSPHAMIDE
     Indication: Plasma cell myeloma refractory
     Route: 041
     Dates: start: 20240510, end: 20240512
  3. FLUDARABINE [Concomitant]
     Active Substance: FLUDARABINE PHOSPHATE
     Indication: Plasma cell myeloma refractory
     Route: 041
     Dates: start: 20240510, end: 20240512

REACTIONS (3)
  - Cytokine release syndrome [Recovering/Resolving]
  - Parkinsonism [Not Recovered/Not Resolved]
  - Asphyxia [Fatal]

NARRATIVE: CASE EVENT DATE: 20240515
